FAERS Safety Report 17509136 (Version 2)
Quarter: 2020Q1

REPORT INFORMATION
  Report Type: Spontaneous
  Country: US (occurrence: US)
  Receive Date: 20200306
  Receipt Date: 20200309
  Transmission Date: 20200409
  Serious: Yes (Death, Life-Threatening, Hospitalization, Other)
  Sender: FDA-Public Use
  Company Number: US-PFIZER INC-2020097267

PATIENT
  Age: 63 Year
  Sex: Female

DRUGS (5)
  1. PREDNISONE. [Suspect]
     Active Substance: PREDNISONE
     Indication: INFLUENZA
     Dosage: 50 MG, 1X/DAY
     Route: 048
  2. SALBUTAMOL [Concomitant]
     Active Substance: ALBUTEROL
     Indication: INFLUENZA
     Dosage: UNK
     Route: 055
  3. METHYLPREDNISOLONE SODIUM SUCCINATE. [Suspect]
     Active Substance: METHYLPREDNISOLONE SODIUM SUCCINATE
     Indication: INFLUENZA
     Dosage: 125 MG, SINGLE
     Route: 042
  4. IPRATROPIUM [Concomitant]
     Active Substance: IPRATROPIUM
     Indication: INFLUENZA
     Dosage: UNK
     Route: 055
  5. OSELTAMIVIR [Concomitant]
     Active Substance: OSELTAMIVIR
     Indication: INFLUENZA
     Dosage: 75 MG, 2X/DAY
     Route: 048

REACTIONS (8)
  - Bronchopulmonary aspergillosis [Fatal]
  - Cerebral aspergillosis [Fatal]
  - Brain abscess [Fatal]
  - Product use in unapproved indication [Unknown]
  - Aspergillus infection [Fatal]
  - Cerebral haemorrhage [Fatal]
  - Off label use [Unknown]
  - Neurological decompensation [Fatal]
